FAERS Safety Report 19569710 (Version 1)
Quarter: 2021Q3

REPORT INFORMATION
  Report Type: Report from Study
  Country: None (occurrence: US)
  Receive Date: 20210714
  Receipt Date: 20210714
  Transmission Date: 20211014
  Serious: Yes (Other)
  Sender: FDA-Public Use
  Company Number: US-ABBVIE-21K-163-3989467-00

PATIENT
  Sex: Female

DRUGS (1)
  1. HUMIRA [Suspect]
     Active Substance: ADALIMUMAB
     Indication: PRODUCT USED FOR UNKNOWN INDICATION
     Dosage: CF SYRINGE
     Route: 058

REACTIONS (4)
  - Autonomic nervous system imbalance [Recovering/Resolving]
  - Loss of consciousness [Unknown]
  - Food allergy [Recovering/Resolving]
  - Hypotension [Recovering/Resolving]
